FAERS Safety Report 21822850 (Version 1)
Quarter: 2023Q1

REPORT INFORMATION
  Report Type: Spontaneous
  Country: US (occurrence: US)
  Receive Date: 20230105
  Receipt Date: 20230105
  Transmission Date: 20230417
  Serious: No
  Sender: FDA-Public Use
  Company Number: US-TEVA-2022-US-2066676

PATIENT

DRUGS (1)
  1. GUANFACINE [Suspect]
     Active Substance: GUANFACINE
     Indication: Product used for unknown indication
     Dosage: 2 MILLIGRAM DAILY; STRENGTH: 1 MG
     Route: 065

REACTIONS (3)
  - Negative thoughts [Recovered/Resolved]
  - Feeling abnormal [Unknown]
  - Drug ineffective [Unknown]
